FAERS Safety Report 9863183 (Version 2)
Quarter: 2014Q1

REPORT INFORMATION
  Report Type: Report from Study
  Country: US (occurrence: US)
  Receive Date: 20140203
  Receipt Date: 20140203
  Transmission Date: 20141002
  Serious: Yes (Other)
  Sender: FDA-Public Use
  Company Number: US-ACTELION-A-US2011-51130

PATIENT
  Age: 70 Year
  Sex: Male

DRUGS (14)
  1. TRACLEER [Suspect]
     Indication: PULMONARY ARTERIAL HYPERTENSION
     Dosage: 125 MG, BID
     Route: 048
     Dates: start: 2010, end: 201306
  2. TRACLEER [Suspect]
     Dosage: 62.5 MG, BID
     Route: 048
     Dates: start: 201306, end: 201307
  3. TRACLEER [Suspect]
     Dosage: 62.5 MG, BID
     Route: 048
     Dates: start: 2010, end: 2010
  4. REMODULIN [Concomitant]
     Indication: PULMONARY ARTERIAL HYPERTENSION
     Dosage: 0.36 UNK, UNK
     Dates: start: 20111130
  5. REVATIO [Concomitant]
  6. SYNTHROID [Concomitant]
     Dosage: 0.137 MG, QD
  7. LASIX [Concomitant]
     Dosage: 120 MG, UNK
     Dates: start: 2013
  8. CRESTOR [Concomitant]
     Dosage: 20 MG, QD
     Dates: start: 2009
  9. ASPIRIN [Concomitant]
     Dosage: 81 MG, QD
  10. MULTIVITAMIN [Concomitant]
     Dosage: 1 UNK, QD
  11. GARLIC [Concomitant]
     Dosage: 1000 MG, BID
  12. FISH OIL [Concomitant]
     Dosage: 1200 MG, BID
  13. VITAMIN E [Concomitant]
     Dosage: 400 IU, QD
  14. POTASSIUM [Concomitant]
     Dosage: 20 MEQ, QD
     Dates: start: 2013

REACTIONS (2)
  - Abnormal loss of weight [Recovering/Resolving]
  - Ageusia [Recovering/Resolving]
